FAERS Safety Report 14417529 (Version 2)
Quarter: 2018Q1

REPORT INFORMATION
  Report Type: Spontaneous
  Country: US (occurrence: US)
  Receive Date: 20180122
  Receipt Date: 20180201
  Transmission Date: 20180509
  Serious: Yes (Other)
  Sender: FDA-Public Use
  Company Number: US-JNJFOC-20180122928

PATIENT
  Age: 54 Year
  Sex: Male

DRUGS (20)
  1. IMBRUVICA [Suspect]
     Active Substance: IBRUTINIB
     Indication: CHRONIC LYMPHOCYTIC LEUKAEMIA
     Route: 048
     Dates: start: 20180111
  2. ADVAIR HFA [Concomitant]
     Active Substance: FLUTICASONE PROPIONATE\SALMETEROL XINAFOATE
     Dates: end: 20171206
  3. ALBUTEROL. [Concomitant]
     Active Substance: ALBUTEROL
  4. MUCINEX [Concomitant]
     Active Substance: GUAIFENESIN
     Dates: end: 20171206
  5. OMEPRAZOLE. [Concomitant]
     Active Substance: OMEPRAZOLE
     Dates: end: 20171206
  6. MAGNESIUM [Concomitant]
     Active Substance: MAGNESIUM
  7. FLONASE [Concomitant]
     Active Substance: FLUTICASONE PROPIONATE
  8. STRATTERA [Concomitant]
     Active Substance: ATOMOXETINE HYDROCHLORIDE
  9. LISINOPRIL. [Concomitant]
     Active Substance: LISINOPRIL
  10. IMBRUVICA [Suspect]
     Active Substance: IBRUTINIB
     Indication: CHRONIC LYMPHOCYTIC LEUKAEMIA
     Dosage: 420 MG, QD
     Route: 048
     Dates: start: 20160408, end: 20171225
  11. FENOFIBRATE. [Concomitant]
     Active Substance: FENOFIBRATE
  12. SINGULAIR [Concomitant]
     Active Substance: MONTELUKAST SODIUM
  13. VIAGRA [Concomitant]
     Active Substance: SILDENAFIL CITRATE
  14. LANTUS [Concomitant]
     Active Substance: INSULIN GLARGINE
  15. ASPIRIN. [Concomitant]
     Active Substance: ASPIRIN
  16. METHOCARBAMOL. [Concomitant]
     Active Substance: METHOCARBAMOL
  17. IBUPROFEN. [Concomitant]
     Active Substance: IBUPROFEN
  18. LYRICA [Concomitant]
     Active Substance: PREGABALIN
  19. CALCIUM CITRATE [Concomitant]
     Active Substance: CALCIUM CITRATE
  20. MULTIVITAMINS [Concomitant]
     Active Substance: VITAMINS

REACTIONS (2)
  - Food intolerance [Unknown]
  - Neck surgery [Unknown]

NARRATIVE: CASE EVENT DATE: 20180103
